FAERS Safety Report 9620978 (Version 1)
Quarter: 2013Q4

REPORT INFORMATION
  Report Type: Report from Study
  Country: US (occurrence: US)
  Receive Date: 20131015
  Receipt Date: 20131015
  Transmission Date: 20140711
  Serious: Yes (Hospitalization)
  Sender: FDA-Public Use
  Company Number: PHEH2013US021182

PATIENT
  Age: 45 Year
  Sex: Male

DRUGS (2)
  1. TOBI PODHALER [Suspect]
     Indication: BRONCHIECTASIS
     Dosage: 112 MG, BID
     Dates: start: 20130901
  2. TOBI PODHALER [Suspect]
     Indication: PSEUDOMONAS INFECTION

REACTIONS (1)
  - Pneumonia [Unknown]
